FAERS Safety Report 16946817 (Version 1)
Quarter: 2019Q4

REPORT INFORMATION
  Report Type: Spontaneous
  Country: SE (occurrence: SE)
  Receive Date: 20191022
  Receipt Date: 20191022
  Transmission Date: 20200122
  Serious: Yes (Other)
  Sender: FDA-Public Use
  Company Number: SE-PFIZER INC-2019211071

PATIENT
  Age: 74 Year
  Sex: Female

DRUGS (3)
  1. VAGIFEM [Concomitant]
     Active Substance: ESTRADIOL
     Dosage: UNK
     Dates: start: 20190306, end: 20190316
  2. LOSARTAN SANDOZ [LOSARTAN POTASSIUM] [Concomitant]
     Dosage: UNK
  3. LOPID [Suspect]
     Active Substance: GEMFIBROZIL
     Indication: LIPIDS
     Dosage: UNK, 2 X 600
     Dates: start: 20190306

REACTIONS (8)
  - Photophobia [Unknown]
  - Myalgia [Not Recovered/Not Resolved]
  - Arthralgia [Unknown]
  - Flatulence [Unknown]
  - Renal pain [Not Recovered/Not Resolved]
  - Nausea [Unknown]
  - Polymyalgia rheumatica [Not Recovered/Not Resolved]
  - Diarrhoea [Unknown]

NARRATIVE: CASE EVENT DATE: 201903
